FAERS Safety Report 10939764 (Version 1)
Quarter: 2015Q1

REPORT INFORMATION
  Report Type: Spontaneous
  Country: US (occurrence: None)
  Receive Date: 20150212
  Receipt Date: 20150212
  Transmission Date: 20150721
  Serious: No
  Sender: FDA-Public Use
  Company Number: TPA2011A01840

PATIENT
  Age: 89 Year
  Sex: Male
  Weight: 75.21 kg

DRUGS (10)
  1. ALTACE (RAMIPRIL) [Concomitant]
  2. RAMIPRIL. [Concomitant]
     Active Substance: RAMIPRIL
  3. LASIX [Concomitant]
     Active Substance: FUROSEMIDE
  4. ROCALTROL (CALCITRIOL) [Concomitant]
  5. ULORIC [Suspect]
     Active Substance: FEBUXOSTAT
     Indication: GOUT
     Route: 048
     Dates: start: 20110322, end: 20110325
  6. FLOMAX (DRUGS USED IN BENIGN PROSTATIC HYPERTROPHY) [Concomitant]
  7. FUROSEMIDE. [Concomitant]
     Active Substance: FUROSEMIDE
  8. PRAVASTATIN [Concomitant]
     Active Substance: PRAVASTATIN\PRAVASTATIN SODIUM
  9. PREVACID [Concomitant]
     Active Substance: LANSOPRAZOLE
  10. ASPIRIN. [Concomitant]
     Active Substance: ASPIRIN

REACTIONS (3)
  - Mobility decreased [None]
  - Pain [None]
  - Hemiparesis [None]

NARRATIVE: CASE EVENT DATE: 201103
